FAERS Safety Report 9416392 (Version 1)
Quarter: 2013Q3

REPORT INFORMATION
  Report Type: Spontaneous
  Country: US (occurrence: US)
  Receive Date: 20130724
  Receipt Date: 20130724
  Transmission Date: 20140515
  Serious: Yes (Hospitalization)
  Sender: FDA-Public Use
  Company Number: US-PFIZER INC-2013211727

PATIENT
  Sex: Male

DRUGS (2)
  1. INLYTA [Suspect]
     Dosage: UNK
  2. COUMADIN [Suspect]
     Dosage: UNK

REACTIONS (2)
  - Blood urine present [Unknown]
  - Epistaxis [Unknown]
